FAERS Safety Report 7988960-3 (Version None)
Quarter: 2011Q4

REPORT INFORMATION
  Report Type: 
  Country: None (occurrence: None)
  Receive Date: 20111219
  Receipt Date: 20111207
  Transmission Date: 20120403
  Serious: Yes (Hospitalization)
  Sender: FDA-Public Use
  Company Number: US-BAYER-201026695NA

PATIENT
  Age: 22 Year
  Sex: Female
  Weight: 137.87 kg

DRUGS (3)
  1. YASMIN [Suspect]
     Indication: ORAL CONTRACEPTION
     Dosage: UNK UNK, UNK
     Route: 048
     Dates: start: 20040101, end: 20070407
  2. YASMIN [Suspect]
     Indication: MENSTRUATION IRREGULAR
  3. EFFEXOR [Concomitant]
     Indication: DEPRESSION
     Dosage: 300 MG, QD
     Dates: start: 20030101, end: 20090101

REACTIONS (11)
  - PULMONARY EMBOLISM [None]
  - FLATULENCE [None]
  - CHOLECYSTITIS CHRONIC [None]
  - DYSPNOEA EXERTIONAL [None]
  - PRESYNCOPE [None]
  - NAUSEA [None]
  - VOMITING [None]
  - DEEP VEIN THROMBOSIS [None]
  - GALLBLADDER DISORDER [None]
  - ABDOMINAL PAIN UPPER [None]
  - PAIN IN EXTREMITY [None]
